FAERS Safety Report 21269479 (Version 1)
Quarter: 2022Q3

REPORT INFORMATION
  Report Type: Spontaneous
  Country: JP (occurrence: JP)
  Receive Date: 20220830
  Receipt Date: 20220830
  Transmission Date: 20221027
  Serious: Yes (Death, Hospitalization, Other)
  Sender: FDA-Public Use
  Company Number: JP-ASTELLAS-2022JP005707

PATIENT
  Age: 8 Decade
  Sex: Male

DRUGS (6)
  1. PADCEV [Suspect]
     Active Substance: ENFORTUMAB VEDOTIN-EJFV
     Indication: Transitional cell carcinoma
     Dosage: 1.25 MG/KG, 3 TIMES PER 4 WEEKS
     Route: 041
     Dates: start: 20220407
  2. PADCEV [Suspect]
     Active Substance: ENFORTUMAB VEDOTIN-EJFV
     Dosage: 1 STAGE REDUCED DOSE, UNKNOWN FREQ.
     Route: 041
     Dates: start: 20220526, end: 20220711
  3. PREDONINE [Concomitant]
     Active Substance: PREDNISOLONE
     Indication: Skin exfoliation
     Dosage: UNK UNK, UNKNOWN FREQ.
     Route: 065
  4. OLOPATADINE [Concomitant]
     Active Substance: OLOPATADINE
     Indication: Skin exfoliation
     Dosage: UNK UNK, UNKNOWN FREQ.
     Route: 065
  5. MENTHA [Concomitant]
     Indication: Skin exfoliation
     Dosage: UNK UNK, UNKNOWN FREQ.
     Route: 065
  6. POLARAMINE [Concomitant]
     Active Substance: DEXCHLORPHENIRAMINE MALEATE
     Indication: Product used for unknown indication
     Dosage: UNK UNK, UNKNOWN FREQ.
     Route: 065

REACTIONS (7)
  - Anaemia [Not Recovered/Not Resolved]
  - Skin exfoliation [Recovering/Resolving]
  - Pyrexia [Unknown]
  - Pruritus [Recovering/Resolving]
  - Erythema [Recovering/Resolving]
  - Haematuria [Recovered/Resolved]
  - Disease progression [Fatal]

NARRATIVE: CASE EVENT DATE: 20220416
